FAERS Safety Report 5343362-3 (Version None)
Quarter: 2007Q2

REPORT INFORMATION
  Report Type: 
  Country: None (occurrence: None)
  Receive Date: 20070501
  Receipt Date: 20070326
  Transmission Date: 20071010
  Serious: Yes (Other)
  Sender: FDA-Public Use
  Company Number: 200710384US

PATIENT
  Age: 73 Year
  Sex: Female

DRUGS (5)
  1. KETEK [Suspect]
     Indication: ATRIAL FIBRILLATION
     Dosage: 800 MG QD
     Dates: start: 20061201
  2. ANGIOTENSIN [Concomitant]
  3. DIURETICS NOS [Concomitant]
  4. AMLDIPINE (NORVASC 00972401/) [Concomitant]
  5. CLONIDINE [Concomitant]

REACTIONS (6)
  - ARTHRALGIA [None]
  - DRUG INTERACTION [None]
  - ECCHYMOSIS [None]
  - HAEMARTHROSIS [None]
  - INTERNATIONAL NORMALISED RATIO INCREASED [None]
  - PROTHROMBIN TIME PROLONGED [None]
